FAERS Safety Report 4688553-X (Version None)
Quarter: 2005Q2

REPORT INFORMATION
  Report Type: 
  Country: None (occurrence: None)
  Receive Date: 20050311
  Receipt Date: 20050311
  Transmission Date: 20051028
  Serious: Yes (Life-Threatening)
  Sender: FDA-Public Use
  Company Number: None

PATIENT
  Sex: Female
  Weight: 97.977 kg

DRUGS (5)
  1. POTASSIUM CHLORIDE 20MEQ [Suspect]
     Indication: HYPERTENSION
     Dosage: 40 MEQ BID
  2. POTASSIUM CHLORIDE 20MEQ [Suspect]
     Indication: HYPOKALAEMIA
     Dosage: 40 MEQ BID
  3. NORVASC [Concomitant]
  4. PAXIL [Concomitant]
  5. ALPRAZOLAM [Concomitant]

REACTIONS (1)
  - HYPOKALAEMIA [None]
